FAERS Safety Report 19665124 (Version 3)
Quarter: 2021Q3

REPORT INFORMATION
  Report Type: Spontaneous
  Country: IT (occurrence: IT)
  Receive Date: 20210805
  Receipt Date: 20210914
  Transmission Date: 20211014
  Serious: Yes (Hospitalization, Other)
  Sender: FDA-Public Use
  Company Number: IT-SA-2021SA252986

PATIENT
  Age: 21 Year
  Sex: Female

DRUGS (4)
  1. OLANZAPINE. [Suspect]
     Active Substance: OLANZAPINE
     Indication: DRUG ABUSE
     Dosage: 420 MG, TOTAL
     Route: 048
     Dates: start: 20210514, end: 20210514
  2. ESCITALOPRAM OXALATE. [Suspect]
     Active Substance: ESCITALOPRAM OXALATE
     Indication: DRUG ABUSE
     Dosage: 150 MG, TOTAL
     Route: 048
     Dates: start: 20210514, end: 20210514
  3. LORAZEPAM. [Suspect]
     Active Substance: LORAZEPAM
     Indication: DRUG ABUSE
     Dosage: 20 MG, TOTAL
     Route: 048
     Dates: start: 20210514, end: 20210514
  4. STILNOX [Suspect]
     Active Substance: ZOLPIDEM TARTRATE
     Indication: DRUG ABUSE
     Dosage: 1500 MG, TOTAL
     Route: 048
     Dates: start: 20210514, end: 20210514

REACTIONS (6)
  - Tachycardia [Recovering/Resolving]
  - Drug abuse [Recovering/Resolving]
  - Mydriasis [Recovering/Resolving]
  - Depressed level of consciousness [Recovering/Resolving]
  - Sopor [Recovering/Resolving]
  - Hypertonia [Recovering/Resolving]

NARRATIVE: CASE EVENT DATE: 20210514
